FAERS Safety Report 18261789 (Version 3)
Quarter: 2021Q1

REPORT INFORMATION
  Report Type: Report from Study
  Country: US (occurrence: US)
  Receive Date: 20200914
  Receipt Date: 20210317
  Transmission Date: 20210419
  Serious: Yes (Hospitalization, Other)
  Sender: FDA-Public Use
  Company Number: US-ASTELLAS-2019US033058

PATIENT
  Sex: Male

DRUGS (3)
  1. ENZALUTAMIDE [Suspect]
     Active Substance: ENZALUTAMIDE
     Indication: PROSTATE CANCER
     Route: 048
  2. ENZALUTAMIDE [Suspect]
     Active Substance: ENZALUTAMIDE
     Route: 048
     Dates: start: 20190814
  3. ENZALUTAMIDE [Suspect]
     Active Substance: ENZALUTAMIDE
     Route: 048
     Dates: start: 20200814

REACTIONS (19)
  - Back pain [Unknown]
  - Laziness [Unknown]
  - Libido decreased [Unknown]
  - Fatigue [Recovering/Resolving]
  - Pruritus [Unknown]
  - Acne [Unknown]
  - Rhinorrhoea [Unknown]
  - Prostatic abscess [Unknown]
  - Dizziness [Recovering/Resolving]
  - Rash [Unknown]
  - Fall [Unknown]
  - Cystitis [Unknown]
  - Escherichia infection [Unknown]
  - Underdose [Unknown]
  - Erythema [Unknown]
  - Fatigue [Unknown]
  - Irritability [Unknown]
  - Balance disorder [Unknown]
  - Nausea [Recovered/Resolved]
